FAERS Safety Report 16206088 (Version 1)
Quarter: 2019Q2

REPORT INFORMATION
  Report Type: Spontaneous
  Country: US (occurrence: US)
  Receive Date: 20190416
  Receipt Date: 20190416
  Transmission Date: 20190711
  Serious: Yes (Hospitalization)
  Sender: FDA-Public Use
  Company Number: None

PATIENT
  Age: 33 Year
  Sex: Male
  Weight: 75.15 kg

DRUGS (6)
  1. CYCLOPHOSPHAMIDE. [Concomitant]
     Active Substance: CYCLOPHOSPHAMIDE
     Dates: start: 20190412, end: 20190412
  2. DOXORUBICIN [Concomitant]
     Active Substance: DOXORUBICIN
     Dates: start: 20190412, end: 20190412
  3. VINCRISTINE [Concomitant]
     Active Substance: VINCRISTINE
     Dates: start: 20190412, end: 20190412
  4. RITUXIMAB. [Concomitant]
     Active Substance: RITUXIMAB
     Dates: start: 20190412, end: 20190412
  5. PREDNISONE. [Concomitant]
     Active Substance: PREDNISONE
     Dates: start: 20190412, end: 20190416
  6. ROFLUMILAST. [Suspect]
     Active Substance: ROFLUMILAST
     Indication: DIFFUSE LARGE B-CELL LYMPHOMA
     Route: 048
     Dates: start: 20190412, end: 20190415

REACTIONS (6)
  - Nausea [None]
  - Weight decreased [None]
  - Retching [None]
  - Headache [None]
  - Vomiting [None]
  - Abdominal pain [None]

NARRATIVE: CASE EVENT DATE: 20190415
